FAERS Safety Report 16005234 (Version 2)
Quarter: 2019Q2

REPORT INFORMATION
  Report Type: Spontaneous
  Country: US (occurrence: US)
  Receive Date: 20190226
  Receipt Date: 20190403
  Transmission Date: 20190711
  Serious: No
  Sender: FDA-Public Use
  Company Number: US-PFIZER INC-2019073106

PATIENT
  Age: 68 Year
  Sex: Male
  Weight: 96.62 kg

DRUGS (6)
  1. WARFARIN [Concomitant]
     Active Substance: WARFARIN
     Indication: ANTICOAGULANT THERAPY
     Dosage: 7.5 MG, UNK  (6 DAYS PER WEEK)
     Route: 048
     Dates: start: 2010
  2. FENOFIBRATE. [Concomitant]
     Active Substance: FENOFIBRATE
     Indication: BLOOD CHOLESTEROL
     Dosage: 145 MG, 1X/DAY
     Route: 048
  3. WARFARIN [Concomitant]
     Active Substance: WARFARIN
     Dosage: 5 MG, UNK (5 MG TABLET 1 DAY PER WEEK )
     Route: 048
     Dates: start: 2010
  4. TRAMADOL. [Concomitant]
     Active Substance: TRAMADOL
     Indication: BACK PAIN
     Dosage: 50 MG, AS NEEDED (1 OR 2 TABLETS )
     Route: 048
     Dates: start: 2010
  5. EXTRA STRENGTH TYLENOL BACK PAIN [Concomitant]
     Active Substance: ACETAMINOPHEN\METHOCARBAMOL
     Indication: BACK PAIN
     Dosage: UNK, AS NEEDED (TAKES 1 OR 2 TABLETS AS NEEDED)
     Route: 048
     Dates: start: 2010
  6. LYRICA [Suspect]
     Active Substance: PREGABALIN
     Indication: NEUROPATHY PERIPHERAL
     Dosage: 75 MG, TWICE PER DAY
     Route: 048
     Dates: start: 201804

REACTIONS (1)
  - Drug ineffective [Unknown]
